FAERS Safety Report 8094966-9 (Version None)
Quarter: 2012Q1

REPORT INFORMATION
  Report Type: 
  Country: None (occurrence: None)
  Receive Date: 20120126
  Receipt Date: 20120117
  Transmission Date: 20120608
  Serious: Yes (Death)
  Sender: FDA-Public Use
  Company Number: 216523

PATIENT
  Sex: Male

DRUGS (1)
  1. INNOHEP [Suspect]
     Indication: EMBOLISM VENOUS
     Dosage: 18,000 IU,SUBCUTANEOUS
     Route: 058

REACTIONS (2)
  - EMBOLISM VENOUS [None]
  - DISEASE RECURRENCE [None]
